FAERS Safety Report 9432813 (Version 1)
Quarter: 2013Q3

REPORT INFORMATION
  Report Type: Spontaneous
  Country: GB (occurrence: GB)
  Receive Date: 20130729
  Receipt Date: 20130729
  Transmission Date: 20140515
  Serious: Yes (Other)
  Sender: FDA-Public Use
  Company Number: GER/UKI/13/0032838

PATIENT
  Age: 36 Year
  Sex: Female

DRUGS (6)
  1. OLANZAPINE (OLANZAPINE) [Suspect]
     Indication: SCHIZOPHRENIA
  2. OMEPRAZOLE (OMEPRAZOLE) [Suspect]
     Indication: EXPOSURE DURING PREGNANCY
     Route: 048
  3. DIAZEPAM (DIAZEPAM) [Suspect]
     Indication: PRODUCT USED FOR UNKNOWN INDICATION
     Route: 048
  4. PREGABALIN (PREGABALIN) [Suspect]
     Indication: PAIN IN EXTREMITY
     Route: 048
  5. SUBUTEX (BUPRENORPHINE HYDROCHLORIDE) [Suspect]
     Indication: PRODUCT USED FOR UNKNOWN INDICATION
     Route: 060
  6. ZOPICLONE (ZOPICLONE) [Suspect]
     Indication: PRODUCT USED FOR UNKNOWN INDICATION
     Route: 048

REACTIONS (3)
  - Drug abuse [None]
  - Foetal malformation [None]
  - Exposure during pregnancy [None]
